FAERS Safety Report 22084894 (Version 1)
Quarter: 2023Q1

REPORT INFORMATION
  Report Type: Spontaneous
  Country: RO (occurrence: None)
  Receive Date: 20230310
  Receipt Date: 20230310
  Transmission Date: 20230418
  Serious: Yes (Other)
  Sender: FDA-Public Use
  Company Number: 2023A057164

PATIENT
  Age: 18 Year
  Sex: Male

DRUGS (2)
  1. FASENRA [Suspect]
     Active Substance: BENRALIZUMAB
     Indication: Asthma
     Route: 058
     Dates: start: 202107
  2. ASPIRIN\CAFFEINE\CODEINE PHOSPHATE\PHENACETIN\PHENOBARBITAL [Suspect]
     Active Substance: ASPIRIN\CAFFEINE\CODEINE PHOSPHATE\PHENACETIN\PHENOBARBITAL
     Dosage: 1 TABLET
     Route: 048

REACTIONS (2)
  - Asthmatic crisis [Recovered/Resolved]
  - Sensitisation [Recovered/Resolved]

NARRATIVE: CASE EVENT DATE: 20220901
